FAERS Safety Report 5024491-0 (Version None)
Quarter: 2006Q2

REPORT INFORMATION
  Report Type: 
  Country: None (occurrence: None)
  Receive Date: 20060609
  Receipt Date: 20060609
  Transmission Date: 20061013
  Serious: Yes (Hospitalization, Other)
  Sender: FDA-Public Use
  Company Number: None

PATIENT
  Age: 41 Year
  Sex: Female
  Weight: 49 kg

DRUGS (6)
  1. CYCLOPHOSPHAMIDE [Suspect]
     Indication: DIFFUSE LARGE B-CELL LYMPHOMA
     Dosage: 188 MG
     Dates: start: 20060529
  2. DOXORUBICIN HCL [Suspect]
     Dosage: 14.8 MG
     Dates: start: 20060528
  3. ETOPOSIDE [Suspect]
     Dosage: 74 MG
     Dates: start: 20060528
  4. G-CSF (FILGRASTIM, AMGEN) [Suspect]
     Dosage: 240 MCG
     Dates: start: 20060606
  5. PREDNISONE [Suspect]
     Dosage: 90 MG
     Dates: start: 20060529
  6. VINCRISTINE SULFATE [Suspect]
     Dosage: .6 MG
     Dates: start: 20060528

REACTIONS (1)
  - FEBRILE NEUTROPENIA [None]
